FAERS Safety Report 22278312 (Version 1)
Quarter: 2023Q2

REPORT INFORMATION
  Report Type: Spontaneous
  Country: US (occurrence: US)
  Receive Date: 20230503
  Receipt Date: 20230503
  Transmission Date: 20230722
  Serious: No
  Sender: FDA-Public Use
  Company Number: US-SA-SAC20230501000711

PATIENT
  Sex: Male

DRUGS (3)
  1. DUPIXENT [Suspect]
     Active Substance: DUPILUMAB
     Indication: Dermatitis atopic
     Dosage: 1 DF, QOW
     Route: 058
     Dates: start: 202109
  2. PROAIR DIGIHALER [Concomitant]
     Active Substance: ALBUTEROL SULFATE
  3. CLARITIN [Concomitant]
     Active Substance: LORATADINE

REACTIONS (2)
  - Dermatitis atopic [Unknown]
  - Pruritus [Unknown]
